FAERS Safety Report 8157205-6 (Version None)
Quarter: 2012Q1

REPORT INFORMATION
  Report Type: 
  Country: None (occurrence: None)
  Receive Date: 20120222
  Receipt Date: 20120213
  Transmission Date: 20120608
  Serious: Yes (Hospitalization)
  Sender: FDA-Public Use
  Company Number: NL-MEDIMMUNE-MEDI-0014965

PATIENT
  Sex: Female
  Weight: 5.91 kg

DRUGS (2)
  1. SYNAGIS [Suspect]
     Indication: HEART DISEASE CONGENITAL
     Route: 030
     Dates: start: 20111026, end: 20111026
  2. SYNAGIS [Suspect]
     Route: 030
     Dates: start: 20120116, end: 20120213

REACTIONS (4)
  - WEIGHT DECREASED [None]
  - NASOPHARYNGITIS [None]
  - GROWTH RETARDATION [None]
  - DECREASED APPETITE [None]
